FAERS Safety Report 20655542 (Version 1)
Quarter: 2022Q1

REPORT INFORMATION
  Report Type: Spontaneous
  Country: US (occurrence: None)
  Receive Date: 20220330
  Receipt Date: 20220330
  Transmission Date: 20220423
  Serious: No
  Sender: FDA-Public Use
  Company Number: 2022A092996

PATIENT
  Age: 76 Year
  Sex: Male
  Weight: 69.9 kg

DRUGS (11)
  1. FARXIGA [Suspect]
     Active Substance: DAPAGLIFLOZIN PROPANEDIOL
     Indication: Kidney infection
     Route: 048
     Dates: start: 2022
  2. FARXIGA [Suspect]
     Active Substance: DAPAGLIFLOZIN PROPANEDIOL
     Indication: Kidney infection
     Route: 048
     Dates: start: 2022
  3. FARXIGA [Suspect]
     Active Substance: DAPAGLIFLOZIN PROPANEDIOL
     Indication: Kidney infection
     Route: 048
  4. OMEPRAZOLE [Concomitant]
     Active Substance: OMEPRAZOLE
     Indication: Kidney infection
  5. AMLODIPINE [Concomitant]
     Active Substance: AMLODIPINE BESYLATE
  6. LISINOPRIL [Concomitant]
     Active Substance: LISINOPRIL
  7. ATENOLOL [Concomitant]
     Active Substance: ATENOLOL
  8. ASPIRIN [Concomitant]
     Active Substance: ASPIRIN
  9. JANUMET XR [Concomitant]
     Active Substance: METFORMIN HYDROCHLORIDE\SITAGLIPTIN PHOSPHATE
     Indication: Kidney infection
     Dosage: 50MG/1000MG
  10. NATEGLINIDE [Concomitant]
     Active Substance: NATEGLINIDE
     Indication: Kidney infection
     Route: 048
  11. ZETIA [Concomitant]
     Active Substance: EZETIMIBE
     Indication: Hypersensitivity

REACTIONS (4)
  - Drug interaction [Unknown]
  - Night sweats [Unknown]
  - Pollakiuria [Unknown]
  - Polydipsia [Unknown]

NARRATIVE: CASE EVENT DATE: 20220101
